FAERS Safety Report 23668250 (Version 1)
Quarter: 2024Q1

REPORT INFORMATION
  Report Type: Spontaneous
  Country: ES (occurrence: ES)
  Receive Date: 20240325
  Receipt Date: 20240325
  Transmission Date: 20240409
  Serious: Yes (Other)
  Sender: FDA-Public Use
  Company Number: ES-GALDERMA-ES2024004769

PATIENT

DRUGS (1)
  1. IVERMECTIN [Suspect]
     Active Substance: IVERMECTIN
     Indication: Demodicidosis
     Dosage: 1 DOSAGE FORM, PAN-FACIAL APPLICATION OF THE CREAM
     Route: 061

REACTIONS (2)
  - Jarisch-Herxheimer reaction [Recovered/Resolved]
  - Intentional product use issue [Recovered/Resolved]
